FAERS Safety Report 7201354-3 (Version None)
Quarter: 2010Q4

REPORT INFORMATION
  Report Type: 
  Country: None (occurrence: None)
  Receive Date: 20101229
  Receipt Date: 20101220
  Transmission Date: 20110411
  Serious: Yes (Other)
  Sender: FDA-Public Use
  Company Number: US-EISAI INC.-E3810-04327-SPO-US

PATIENT
  Age: 46 Year
  Sex: Female
  Weight: 67 kg

DRUGS (6)
  1. ACIPHEX [Suspect]
     Route: 048
     Dates: start: 20060101
  2. MULTI-VITAMINS [Concomitant]
     Indication: SUPPLEMENTATION THERAPY
     Route: 048
     Dates: start: 20060101
  3. ERYTHROMYCIN [Concomitant]
     Indication: ACNE
     Route: 048
     Dates: start: 20070101
  4. MOTRIN [Concomitant]
     Indication: HEADACHE
     Dosage: 1-2
     Route: 048
     Dates: start: 20090101
  5. SOMA [Concomitant]
     Indication: HEADACHE
     Dosage: 1 TAB
     Route: 048
     Dates: start: 20090101
  6. RETIN-A [Concomitant]
     Indication: ACNE
     Route: 061
     Dates: start: 20090101

REACTIONS (1)
  - BLOOD POTASSIUM DECREASED [None]
